FAERS Safety Report 9419185 (Version 1)
Quarter: 2013Q3

REPORT INFORMATION
  Report Type: Spontaneous
  Country: DE (occurrence: DE)
  Receive Date: 20130725
  Receipt Date: 20130725
  Transmission Date: 20140515
  Serious: Yes (Other)
  Sender: FDA-Public Use
  Company Number: DE-ELI_LILLY_AND_COMPANY-DE201307004978

PATIENT
  Age: 30 Year
  Sex: Female

DRUGS (3)
  1. CYMBALTA [Suspect]
     Indication: DEPRESSION
     Dosage: 60 MG, QD
     Route: 048
     Dates: start: 20130601
  2. DIPIPERON [Concomitant]
     Dosage: 20 MG, QD
     Route: 065
     Dates: start: 20130601, end: 20130627
  3. CETIRIZIN [Concomitant]
     Dosage: 10 MG, QD
     Route: 065
     Dates: start: 20130619

REACTIONS (1)
  - Liver function test abnormal [Unknown]
